FAERS Safety Report 9939067 (Version 1)
Quarter: 2014Q1

REPORT INFORMATION
  Report Type: Report from Study
  Country: US (occurrence: US)
  Receive Date: 20140303
  Receipt Date: 20140303
  Transmission Date: 20141002
  Serious: No
  Sender: FDA-Public Use
  Company Number: US-ABBVIE-13P-163-1036947-00

PATIENT
  Age: 38 Year
  Sex: Female

DRUGS (8)
  1. HUMIRA [Suspect]
     Indication: CROHN^S DISEASE
     Dates: start: 20121222, end: 20121222
  2. HUMIRA [Suspect]
     Dates: start: 20130105
  3. TOPAMAX [Concomitant]
     Indication: MIGRAINE
     Dosage: IN THE MORNING AND IN THE EVENING
  4. MAXALT [Concomitant]
     Indication: MIGRAINE
  5. CALCIUM [Concomitant]
     Indication: PRODUCT USED FOR UNKNOWN INDICATION
     Dosage: DAILY
  6. VITAMIN B12 [Concomitant]
     Indication: VITAMIN B12 DEFICIENCY
     Dosage: DAILY
     Route: 048
  7. VITAMIN B12 [Concomitant]
     Indication: VITAMIN B12 DEFICIENCY
     Dosage: ONCE MONTHLY
  8. VITAMIN D [Concomitant]
     Indication: PRODUCT USED FOR UNKNOWN INDICATION
     Dosage: DAILY

REACTIONS (1)
  - Rash pruritic [Recovering/Resolving]
